FAERS Safety Report 13827109 (Version 1)
Quarter: 2017Q3

REPORT INFORMATION
  Report Type: Spontaneous
  Country: US (occurrence: US)
  Receive Date: 20170802
  Receipt Date: 20170802
  Transmission Date: 20171127
  Serious: No
  Sender: FDA-Public Use
  Company Number: US-ROCHE-667721

PATIENT
  Age: 91 Year
  Sex: Female
  Weight: 65.8 kg

DRUGS (1)
  1. BONIVA [Suspect]
     Active Substance: IBANDRONATE SODIUM
     Indication: OSTEOPOROSIS
     Route: 048
     Dates: start: 2006, end: 200906

REACTIONS (3)
  - Muscular weakness [Unknown]
  - Bone disorder [Unknown]
  - Tooth fracture [Unknown]
